FAERS Safety Report 22256901 (Version 3)
Quarter: 2023Q2

REPORT INFORMATION
  Report Type: Report from Study
  Country: US (occurrence: US)
  Receive Date: 20230426
  Receipt Date: 20230530
  Transmission Date: 20230721
  Serious: Yes (Death, Hospitalization, Other)
  Sender: FDA-Public Use
  Company Number: US-ABBVIE-4742905

PATIENT
  Age: 81 Year
  Sex: Male

DRUGS (2)
  1. HUMIRA [Suspect]
     Active Substance: ADALIMUMAB
     Indication: Psoriasis
     Dosage: CITRATE FREE FORM STRENGTH: 40 MG
     Route: 058
     Dates: start: 20140426
  2. HUMIRA [Suspect]
     Active Substance: ADALIMUMAB
     Indication: Crohn^s disease

REACTIONS (3)
  - Gastrointestinal haemorrhage [Fatal]
  - Large intestinal haemorrhage [Not Recovered/Not Resolved]
  - Infection [Fatal]

NARRATIVE: CASE EVENT DATE: 20230401
